FAERS Safety Report 8956324 (Version 3)
Quarter: 2013Q1

REPORT INFORMATION
  Report Type: Spontaneous
  Country: US (occurrence: US)
  Receive Date: 20121210
  Receipt Date: 20130329
  Transmission Date: 20140127
  Serious: Yes (Life-Threatening, Hospitalization, Other)
  Sender: FDA-Public Use
  Company Number: US-ASTRAZENECA-2006UW18044

PATIENT
  Age: 63 Year
  Sex: Female
  Weight: 126.6 kg

DRUGS (42)
  1. SEROQUEL [Suspect]
     Indication: DEPRESSION
     Route: 048
     Dates: start: 2005, end: 2006
  2. SEROQUEL [Suspect]
     Indication: SUICIDAL IDEATION
     Route: 048
     Dates: start: 2005, end: 2006
  3. SEROQUEL [Suspect]
     Indication: PSYCHOTIC DISORDER
     Route: 048
     Dates: start: 2005, end: 2006
  4. SEROQUEL [Suspect]
     Indication: DEPRESSION
     Route: 048
     Dates: start: 200511
  5. SEROQUEL [Suspect]
     Indication: SUICIDAL IDEATION
     Route: 048
     Dates: start: 200511
  6. SEROQUEL [Suspect]
     Indication: PSYCHOTIC DISORDER
     Route: 048
     Dates: start: 200511
  7. SEROQUEL [Suspect]
     Indication: DEPRESSION
     Route: 048
     Dates: start: 20060223, end: 20060308
  8. SEROQUEL [Suspect]
     Indication: SUICIDAL IDEATION
     Route: 048
     Dates: start: 20060223, end: 20060308
  9. SEROQUEL [Suspect]
     Indication: PSYCHOTIC DISORDER
     Route: 048
     Dates: start: 20060223, end: 20060308
  10. SEROQUEL [Suspect]
     Indication: DEPRESSION
     Route: 048
     Dates: start: 20060309, end: 200603
  11. SEROQUEL [Suspect]
     Indication: SUICIDAL IDEATION
     Route: 048
     Dates: start: 20060309, end: 200603
  12. SEROQUEL [Suspect]
     Indication: PSYCHOTIC DISORDER
     Route: 048
     Dates: start: 20060309, end: 200603
  13. SEROQUEL [Suspect]
     Indication: DEPRESSION
     Route: 048
     Dates: start: 20060313, end: 20060607
  14. SEROQUEL [Suspect]
     Indication: SUICIDAL IDEATION
     Route: 048
     Dates: start: 20060313, end: 20060607
  15. SEROQUEL [Suspect]
     Indication: PSYCHOTIC DISORDER
     Route: 048
     Dates: start: 20060313, end: 20060607
  16. SEROQUEL [Suspect]
     Indication: DEPRESSION
     Route: 048
     Dates: start: 20060607, end: 20060707
  17. SEROQUEL [Suspect]
     Indication: SUICIDAL IDEATION
     Route: 048
     Dates: start: 20060607, end: 20060707
  18. SEROQUEL [Suspect]
     Indication: PSYCHOTIC DISORDER
     Route: 048
     Dates: start: 20060607, end: 20060707
  19. SEROQUEL [Suspect]
     Indication: DEPRESSION
     Route: 048
     Dates: start: 2006
  20. SEROQUEL [Suspect]
     Indication: SUICIDAL IDEATION
     Route: 048
     Dates: start: 2006
  21. SEROQUEL [Suspect]
     Indication: PSYCHOTIC DISORDER
     Route: 048
     Dates: start: 2006
  22. LISINOPROL [Suspect]
     Indication: HYPERTENSION
     Route: 048
     Dates: start: 2005
  23. LEXAPRO [Concomitant]
  24. AVANDIA [Concomitant]
     Indication: DIABETES MELLITUS
  25. AVANDIA [Concomitant]
     Indication: DIABETES MELLITUS
     Route: 048
     Dates: start: 2004
  26. GLUCOPHAGE XR [Concomitant]
     Indication: DIABETES MELLITUS
     Route: 048
     Dates: start: 2004
  27. GLUCOPHAGE XR [Concomitant]
     Indication: DIABETES MELLITUS
     Route: 048
     Dates: start: 2005
  28. LIPITOR [Concomitant]
     Indication: BLOOD CHOLESTEROL ABNORMAL
     Route: 048
     Dates: start: 2004
  29. LIPITOR [Concomitant]
     Indication: BLOOD CHOLESTEROL ABNORMAL
     Route: 048
     Dates: start: 2005
  30. PRINIVIL [Concomitant]
     Indication: HYPERTENSION
     Route: 048
     Dates: start: 2004
  31. AMBIEN [Concomitant]
     Indication: SLEEP DISORDER
     Dosage: 10 MG HS PRN
  32. AMBIEN [Concomitant]
     Indication: SLEEP DISORDER
     Route: 048
  33. RISPERDAL [Concomitant]
  34. INSULIN [Concomitant]
  35. ATIVAN [Concomitant]
     Dosage: 1 MG Q4H PRN
  36. ARTANE [Concomitant]
  37. ASPIRIN [Concomitant]
     Indication: CEREBROVASCULAR ACCIDENT
     Route: 048
     Dates: start: 2004
  38. ASPIRIN [Concomitant]
     Indication: CEREBROVASCULAR ACCIDENT
     Route: 048
     Dates: start: 2005
  39. LANTUS [Concomitant]
     Indication: DIABETES MELLITUS
     Route: 058
     Dates: start: 2004
  40. ACTOS [Concomitant]
     Route: 048
     Dates: start: 2011
  41. FISH OIL [Concomitant]
     Dates: start: 2010
  42. VITAMIN D [Concomitant]
     Dosage: 2000 IU DAILY
     Dates: start: 2010

REACTIONS (18)
  - Apparent death [Unknown]
  - Headache [Not Recovered/Not Resolved]
  - Major depression [Recovering/Resolving]
  - Neck pain [Unknown]
  - Cerebrovascular accident [Unknown]
  - Facial pain [Unknown]
  - VIIth nerve paralysis [Unknown]
  - Tongue injury [Unknown]
  - Tongue haemorrhage [Unknown]
  - Hemiplegia [Unknown]
  - Brain injury [Unknown]
  - Head injury [Unknown]
  - Nervous system disorder [Unknown]
  - Insomnia [Unknown]
  - Urinary tract infection [Recovering/Resolving]
  - Weight fluctuation [Unknown]
  - Mastication disorder [Unknown]
  - Glossodynia [Unknown]
